FAERS Safety Report 17438686 (Version 1)
Quarter: 2020Q1

REPORT INFORMATION
  Report Type: Spontaneous
  Country: GB (occurrence: GB)
  Receive Date: 20200220
  Receipt Date: 20200220
  Transmission Date: 20200409
  Serious: Yes (Other)
  Sender: FDA-Public Use
  Company Number: GB-TEVA-2020-GB-1188420

PATIENT
  Age: 65 Year
  Sex: Female
  Weight: 92.98 kg

DRUGS (4)
  1. LOSARTAN POTASSIUM. [Suspect]
     Active Substance: LOSARTAN POTASSIUM
     Indication: BLOOD PRESSURE INCREASED
     Dosage: 50
     Route: 048
     Dates: start: 20200124
  2. DOXAZOSIN [Concomitant]
     Active Substance: DOXAZOSIN MESYLATE
  3. APIXABAN [Concomitant]
     Active Substance: APIXABAN
  4. SIMVASTATIN. [Concomitant]
     Active Substance: SIMVASTATIN

REACTIONS (6)
  - Dysuria [Unknown]
  - Urinary tract infection [Not Recovered/Not Resolved]
  - Urine output decreased [Unknown]
  - Hyperhidrosis [Unknown]
  - Abdominal pain lower [Unknown]
  - Pollakiuria [Unknown]

NARRATIVE: CASE EVENT DATE: 20200129
